FAERS Safety Report 21763914 (Version 2)
Quarter: 2022Q4

REPORT INFORMATION
  Report Type: Report from Study
  Country: US (occurrence: US)
  Receive Date: 20221222
  Receipt Date: 20221228
  Transmission Date: 20230113
  Serious: Yes (Other)
  Sender: FDA-Public Use
  Company Number: US-ABBVIE-4245124

PATIENT
  Sex: Female

DRUGS (1)
  1. HUMIRA [Suspect]
     Active Substance: ADALIMUMAB
     Indication: Rheumatoid arthritis
     Route: 058
     Dates: start: 20220817

REACTIONS (4)
  - Cholelithiasis [Recovered/Resolved]
  - Drug specific antibody present [Not Recovered/Not Resolved]
  - Bile duct stone [Recovered/Resolved]
  - Cholelithiasis migration [Recovered/Resolved]
